FAERS Safety Report 16855210 (Version 1)
Quarter: 2019Q3

REPORT INFORMATION
  Report Type: Spontaneous
  Country: US (occurrence: US)
  Receive Date: 20190926
  Receipt Date: 20190926
  Transmission Date: 20191005
  Serious: No
  Sender: FDA-Public Use
  Company Number: US-BION-007995

PATIENT
  Age: 72 Year
  Sex: Male

DRUGS (1)
  1. LOPERAMIDE UNKNOWN 2 MG SOFT GEL CAPSULES [Suspect]
     Active Substance: LOPERAMIDE HYDROCHLORIDE
     Indication: DIARRHOEA
     Dosage: STRENGTH: 2 MG?2 CAPSULES ON 03-MAY-2019?LAST DATE OF ADMINISTRATION: 04-MAY-2019
     Dates: start: 20190503

REACTIONS (1)
  - Flushing [Recovered/Resolved]
